FAERS Safety Report 5824271-X (Version None)
Quarter: 2008Q3

REPORT INFORMATION
  Report Type: 
  Country: None (occurrence: None)
  Receive Date: 20080721
  Receipt Date: 20080708
  Transmission Date: 20090109
  Serious: Yes (Other)
  Sender: FDA-Public Use
  Company Number: B0529648A

PATIENT
  Age: 87 Year
  Sex: Female

DRUGS (2)
  1. FONDAPARINUX SODIUM (FORMULATION UNKNOWN) (GENERIC) (FONDAPARINUX SODI [Suspect]
     Indication: THROMBOSIS PROPHYLAXIS
     Dosage: 25 MG/PER DAY  SUBCUTANEOUS
     Route: 058
  2. HEPARIN [Suspect]
     Dosage: 5000  / SINGLE DOSE / SUBCUTANEOUS
     Route: 058

REACTIONS (1)
  - HEPARIN-INDUCED THROMBOCYTOPENIA [None]
